FAERS Safety Report 9786557 (Version 3)
Quarter: 2021Q2

REPORT INFORMATION
  Report Type: Spontaneous
  Country: DE (occurrence: DE)
  Receive Date: 20131227
  Receipt Date: 20210520
  Transmission Date: 20210717
  Serious: Yes (Hospitalization, Other)
  Sender: FDA-Public Use
  Company Number: DE-PFIZER INC-2013366815

PATIENT
  Age: 36 Year
  Sex: Female
  Weight: 77 kg

DRUGS (3)
  1. SULFASALAZINE. [Suspect]
     Active Substance: SULFASALAZINE
     Indication: POLYARTHRITIS
     Dosage: 1500 MG, DAILY
  2. SULFASALAZINE. [Suspect]
     Active Substance: SULFASALAZINE
     Dosage: 2000MG AFTER WEEKS
  3. PIROXICAM. [Concomitant]
     Active Substance: PIROXICAM
     Indication: POLYARTHRITIS
     Dosage: 20 MG, DAILY

REACTIONS (6)
  - Lung disorder [Recovered/Resolved]
  - Respiratory failure [Unknown]
  - Body temperature increased [Unknown]
  - Alveolitis [Recovered/Resolved]
  - Vasculitis [Not Recovered/Not Resolved]
  - Myopathy [Not Recovered/Not Resolved]
